FAERS Safety Report 9703782 (Version 1)
Quarter: 2013Q4

REPORT INFORMATION
  Report Type: Spontaneous
  Country: US (occurrence: None)
  Receive Date: 20131121
  Receipt Date: 20131121
  Transmission Date: 20140711
  Serious: Yes (Hospitalization)
  Sender: FDA-Public Use
  Company Number: None

PATIENT
  Age: 59 Year
  Sex: Male

DRUGS (1)
  1. RIBAPAK [Suspect]
     Indication: HEPATITIS C
     Route: 048
     Dates: start: 20130521, end: 20131013

REACTIONS (3)
  - Pneumonia [None]
  - Local swelling [None]
  - Full blood count decreased [None]
